FAERS Safety Report 5400620-1 (Version None)
Quarter: 2007Q3

REPORT INFORMATION
  Report Type: 
  Country: None (occurrence: None)
  Receive Date: 20070730
  Receipt Date: 20070411
  Transmission Date: 20080115
  Serious: No
  Sender: FDA-Public Use
  Company Number: A0646811A

PATIENT
  Age: 66 Year
  Sex: Female

DRUGS (4)
  1. ZANTAC 150 [Suspect]
     Dosage: 300 PER DAY
     Route: 048
     Dates: start: 20010101
  2. SYNTHROID [Concomitant]
  3. TAMBOCOR [Concomitant]
  4. CALAN [Concomitant]

REACTIONS (2)
  - ADVERSE EVENT [None]
  - PHARMACEUTICAL PRODUCT COMPLAINT [None]
